FAERS Safety Report 5448217-1 (Version None)
Quarter: 2007Q3

REPORT INFORMATION
  Report Type: 
  Country: None (occurrence: None)
  Receive Date: 20070906
  Receipt Date: 20070830
  Transmission Date: 20080115
  Serious: Yes (Other)
  Sender: FDA-Public Use
  Company Number: 2007SP014603

PATIENT
  Age: 74 Year

DRUGS (1)
  1. TEMODAL [Suspect]
     Indication: GLIOBLASTOMA MULTIFORME
     Dosage: ;PO
     Route: 048
     Dates: start: 20070101

REACTIONS (1)
  - PULMONARY OEDEMA [None]
